FAERS Safety Report 14424264 (Version 3)
Quarter: 2018Q1

REPORT INFORMATION
  Report Type: Report from Study
  Country: US (occurrence: US)
  Receive Date: 20180123
  Receipt Date: 20180312
  Transmission Date: 20180509
  Serious: Yes (Hospitalization, Other)
  Sender: FDA-Public Use
  Company Number: US-AMGEN-USASL2017159802

PATIENT
  Age: 65 Year
  Sex: Male

DRUGS (2)
  1. REPATHA [Suspect]
     Active Substance: EVOLOCUMAB
     Indication: HYPERCHOLESTEROLAEMIA
  2. REPATHA [Suspect]
     Active Substance: EVOLOCUMAB
     Indication: HYPERLIPIDAEMIA
     Dosage: 140 MG, Q2WK
     Route: 065

REACTIONS (20)
  - Pruritus [Unknown]
  - Bronchitis viral [Unknown]
  - Fatigue [Unknown]
  - Pneumonia [Unknown]
  - Spinal laminectomy [Unknown]
  - Abdominal distension [Unknown]
  - Flatulence [Unknown]
  - Depression [Unknown]
  - Obstructive airways disorder [Unknown]
  - Dyspnoea exertional [Unknown]
  - Pyrexia [Unknown]
  - Asthenia [Unknown]
  - Secretion discharge [Unknown]
  - Respiratory disorder [Unknown]
  - Anxiety [Unknown]
  - Feeling abnormal [Unknown]
  - Dyspnoea [Unknown]
  - Diarrhoea [Unknown]
  - Influenza like illness [Unknown]
  - Rash [Unknown]

NARRATIVE: CASE EVENT DATE: 201702
